FAERS Safety Report 17703577 (Version 1)
Quarter: 2020Q2

REPORT INFORMATION
  Report Type: Spontaneous
  Country: US (occurrence: US)
  Receive Date: 20200424
  Receipt Date: 20200424
  Transmission Date: 20200714
  Serious: No
  Sender: FDA-Public Use
  Company Number: US-AUROBINDO-AUR-APL-2019-045076

PATIENT
  Age: 73 Year
  Sex: Female
  Weight: 57 kg

DRUGS (2)
  1. IBANDRONATE SODIUM TABLET 150 MG [Suspect]
     Active Substance: IBANDRONATE SODIUM
     Indication: OSTEOPOROSIS
     Dosage: 1 DOSAGE FORM, ONCE A MONTH IN THE MORNING
     Route: 048
     Dates: start: 20190720
  2. LEVOTHYROXINE. [Concomitant]
     Active Substance: LEVOTHYROXINE
     Indication: HYPOTHYROIDISM
     Dosage: 0.05 MILLIGRAM, EVERY MORNING BEFORE EATING
     Route: 048

REACTIONS (5)
  - Myalgia [Recovering/Resolving]
  - Pain in extremity [Recovering/Resolving]
  - Back pain [Recovering/Resolving]
  - Abdominal pain [Recovering/Resolving]
  - Arthralgia [Recovering/Resolving]

NARRATIVE: CASE EVENT DATE: 20190721
